FAERS Safety Report 18280620 (Version 3)
Quarter: 2021Q3

REPORT INFORMATION
  Report Type: Spontaneous
  Country: US (occurrence: US)
  Receive Date: 20200918
  Receipt Date: 20210922
  Transmission Date: 20211014
  Serious: Yes (Other)
  Sender: FDA-Public Use
  Company Number: US-SA-2020SA254034

PATIENT
  Age: 51 Year
  Sex: Male

DRUGS (3)
  1. ZANTAC [Suspect]
     Active Substance: RANITIDINE HYDROCHLORIDE
     Indication: GASTROOESOPHAGEAL REFLUX DISEASE
     Dosage: 300 MG, FREQUENCY: PERIODS OF NON?USE (AT LEAST 3 MONTHS WITHOUT USE)
     Dates: end: 201408
  2. ZANTAC [Suspect]
     Active Substance: RANITIDINE HYDROCHLORIDE
     Indication: DYSPEPSIA
     Dosage: 75 MG, FREQUENCY: PERIODS OF NON?USE (AT LEAST 3 MONTHS WITHOUT USE)
     Dates: start: 198801
  3. ZANTAC [Suspect]
     Active Substance: RANITIDINE HYDROCHLORIDE
     Indication: HYPERCHLORHYDRIA
     Dosage: 150 MG, FREQUENCY: PERIODS OF NON?USE (AT LEAST 3 MONTHS WITHOUT USE)

REACTIONS (2)
  - Prostatic disorder [Unknown]
  - Prostate cancer [Unknown]

NARRATIVE: CASE EVENT DATE: 200010
